FAERS Safety Report 5128107-4 (Version None)
Quarter: 2006Q4

REPORT INFORMATION
  Report Type: 
  Country: None (occurrence: None)
  Receive Date: 20061011
  Receipt Date: 20060922
  Transmission Date: 20070319
  Serious: Yes (Life-Threatening, Hospitalization)
  Sender: FDA-Public Use
  Company Number: 230717

PATIENT
  Age: 31 Year
  Sex: Female

DRUGS (4)
  1. HERCEPTIN [Suspect]
     Indication: BREAST CANCER
     Dosage: 150 MG, SINGLE, INTRAVENOUS
     Route: 042
     Dates: start: 20060509, end: 20060509
  2. KALETRA [Suspect]
     Indication: DRUG USE FOR UNKNOWN INDICATION
     Dosage: ORAL
     Route: 048
     Dates: start: 20060115, end: 20060516
  3. DOCETAXEL (DOCETAXEL) [Concomitant]
  4. TRUVADA [Concomitant]

REACTIONS (3)
  - AGRANULOCYTOSIS [None]
  - DRUG INTERACTION [None]
  - MUCOSAL INFLAMMATION [None]
